FAERS Safety Report 14067660 (Version 3)
Quarter: 2018Q2

REPORT INFORMATION
  Report Type: Spontaneous
  Country: GB (occurrence: GB)
  Receive Date: 20171010
  Receipt Date: 20180405
  Transmission Date: 20180711
  Serious: Yes (Life-Threatening, Disabling, Other)
  Sender: FDA-Public Use
  Company Number: GB-ACCORD-059651

PATIENT
  Age: 67 Year
  Sex: Male
  Weight: 87 kg

DRUGS (6)
  1. BRILIQUE [Suspect]
     Active Substance: TICAGRELOR
     Indication: MYOCARDIAL ISCHAEMIA
     Dosage: ALSO RECEIVED 180 MG/1 DAY
     Route: 048
     Dates: start: 20170125, end: 201705
  2. SILDENAFIL. [Concomitant]
     Active Substance: SILDENAFIL
  3. BISOPROLOL [Concomitant]
     Active Substance: BISOPROLOL
  4. SIMVASTATIN. [Suspect]
     Active Substance: SIMVASTATIN
     Indication: HYPERCHOLESTEROLAEMIA
     Dosage: PREVIOUSLY RECEIVED 80 MG FROM 01-JAN-1999 TO MAY-2017
     Route: 048
     Dates: start: 201705, end: 20170613
  5. GLICLAZIDE [Concomitant]
     Active Substance: GLICLAZIDE
  6. OMEPRAZOLE. [Concomitant]
     Active Substance: OMEPRAZOLE

REACTIONS (4)
  - Overdose [Unknown]
  - White blood cell count increased [Recovering/Resolving]
  - Hyperhidrosis [Unknown]
  - Myelofibrosis [Not Recovered/Not Resolved]

NARRATIVE: CASE EVENT DATE: 201701
